FAERS Safety Report 4612789-7 (Version None)
Quarter: 2005Q1

REPORT INFORMATION
  Report Type: 
  Country: None (occurrence: None)
  Receive Date: 20050318
  Receipt Date: 20050218
  Transmission Date: 20050727
  Serious: Yes (Hospitalization)
  Sender: FDA-Public Use
  Company Number: PHBS2005BE02661

PATIENT
  Age: 34 Year
  Sex: Female

DRUGS (5)
  1. LEPONEX [Suspect]
     Dosage: 500 MG/D
     Route: 048
     Dates: start: 20050101, end: 20050217
  2. LEPONEX [Suspect]
     Dosage: 300 MG/D
     Route: 048
     Dates: start: 20050218, end: 20050303
  3. LEPONEX [Suspect]
     Dosage: 200 MG/D
     Route: 048
     Dates: start: 20050304
  4. XANAX [Suspect]
     Dosage: 1 MG/D
  5. XANAX [Suspect]
     Dosage: 0.5 MG/D

REACTIONS (2)
  - EPILEPSY [None]
  - LYMPHOPENIA [None]
